FAERS Safety Report 5715365-8 (Version None)
Quarter: 2008Q2

REPORT INFORMATION
  Report Type: 
  Country: None (occurrence: None)
  Receive Date: 20080422
  Receipt Date: 20071228
  Transmission Date: 20081010
  Serious: Yes (Death, Hospitalization)
  Sender: FDA-Public Use
  Company Number: 20085024

PATIENT
  Age: 77 Year
  Sex: Female

DRUGS (2)
  1. LIORESAL [Suspect]
     Indication: MUSCLE SPASTICITY
     Dosage: 1732.9 MCG, DAILY, INTRATHECAL
     Route: 037
  2. OXYGEN [Concomitant]

REACTIONS (1)
  - DEATH [None]
